FAERS Safety Report 5121973-8 (Version None)
Quarter: 2006Q4

REPORT INFORMATION
  Report Type: 
  Country: None (occurrence: None)
  Receive Date: 20061006
  Receipt Date: 20051019
  Transmission Date: 20070319
  Serious: Yes (Life-Threatening, Hospitalization, Disabling)
  Sender: FDA-Public Use
  Company Number: JP-BRISTOL-MYERS SQUIBB COMPANY-13154463

PATIENT
  Age: 71 Year
  Sex: Female

DRUGS (2)
  1. TAXOL [Suspect]
     Indication: OVARIAN CANCER
     Dosage: GIVEN ON POD #18
     Route: 042
     Dates: start: 20041105, end: 20041105
  2. PARAPLATIN [Suspect]
     Indication: OVARIAN CANCER
     Dosage: AUC=5 GIVEN ON POD #18
     Route: 041
     Dates: start: 20041105, end: 20041105

REACTIONS (1)
  - HEPATIC CIRRHOSIS [None]
